FAERS Safety Report 4662010-9 (Version None)
Quarter: 2005Q2

REPORT INFORMATION
  Report Type: 
  Country: None (occurrence: None)
  Receive Date: 20050512
  Receipt Date: 20050512
  Transmission Date: 20051028
  Serious: No
  Sender: FDA-Public Use
  Company Number: None

PATIENT
  Sex: Male
  Weight: 68 kg

DRUGS (9)
  1. PEGASYS [Suspect]
     Indication: HEPATITIS C
     Dosage: 180MCG   WEEKLY   SUBCUTANEO
     Route: 058
     Dates: start: 20050330, end: 20050509
  2. RIBASPHERE [Suspect]
     Indication: HEPATITIS C
     Dosage: 400MG   BID   ORAL
     Route: 048
     Dates: start: 20050330, end: 20050509
  3. OLANZAPINE [Concomitant]
  4. ZOLOFT [Concomitant]
  5. TRAZODONE [Concomitant]
  6. ACYCLOVIR [Concomitant]
  7. DOCUSATE [Concomitant]
  8. NAPROXEN [Concomitant]
  9. PRILOSEC [Concomitant]

REACTIONS (1)
  - THROMBOCYTOPENIA [None]
